FAERS Safety Report 6162825-4 (Version None)
Quarter: 2009Q2

REPORT INFORMATION
  Report Type: 
  Country: None (occurrence: None)
  Receive Date: 20090421
  Receipt Date: 20080819
  Transmission Date: 20091009
  Serious: No
  Sender: FDA-Public Use
  Company Number: US-ASTRAZENECA-2008UW17082

PATIENT
  Age: 55 Year
  Sex: Female
  Weight: 127 kg

DRUGS (10)
  1. METOPROLOL SUCCINATE [Suspect]
     Route: 048
     Dates: start: 20080601
  2. AVALIDE [Concomitant]
     Dosage: 300/25
  3. CLARINEX [Concomitant]
  4. SYNTHROID [Concomitant]
  5. ASTELIN [Concomitant]
  6. NUPIROCIN [Concomitant]
  7. NYSTATIN [Concomitant]
  8. OPTIVAR [Concomitant]
  9. PATANOL [Concomitant]
  10. AND TRIANCINDONE ACETONIDE [Concomitant]

REACTIONS (1)
  - CARPAL TUNNEL SYNDROME [None]
